FAERS Safety Report 12742895 (Version 1)
Quarter: 2016Q3

REPORT INFORMATION
  Report Type: Report from Study
  Country: NL (occurrence: NL)
  Receive Date: 20160914
  Receipt Date: 20160914
  Transmission Date: 20161109
  Serious: Yes (Hospitalization, Other)
  Sender: FDA-Public Use
  Company Number: NL-MYLANLABS-2016M1039057

PATIENT

DRUGS (4)
  1. MORPHINE [Suspect]
     Active Substance: MORPHINE
     Indication: PAIN
     Dosage: 10MG IN POST ANAESTHESIA CARE UNIT.
     Route: 065
  2. MORPHINE [Suspect]
     Active Substance: MORPHINE
     Indication: ANALGESIC THERAPY
     Dosage: 30MG MORPHINE IN 12 H.; PCIA
     Route: 042
  3. ESKETAMINE [Concomitant]
     Active Substance: ESKETAMINE
     Indication: ANALGESIC THERAPY
     Dosage: 5 MG/HOUR IN POST ANAESTHESIA CARE UNIT
     Route: 065
  4. PARACETAMOL [Concomitant]
     Active Substance: ACETAMINOPHEN
     Indication: ANALGESIC THERAPY
     Route: 065

REACTIONS (2)
  - Respiratory depression [Recovered/Resolved]
  - Toxicity to various agents [Recovered/Resolved]
